FAERS Safety Report 7419912-X (Version None)
Quarter: 2011Q2

REPORT INFORMATION
  Report Type: 
  Country: None (occurrence: None)
  Receive Date: 20110418
  Receipt Date: 20110411
  Transmission Date: 20111010
  Serious: Yes (Hospitalization)
  Sender: FDA-Public Use
  Company Number: US-AMGEN-USASP2011019370

PATIENT
  Age: 24 Year
  Sex: Male

DRUGS (3)
  1. NPLATE [Suspect]
     Indication: IDIOPATHIC THROMBOCYTOPENIC PURPURA
     Dates: start: 20100421
  2. IVIGLOB-EX [Concomitant]
     Dosage: UNK
     Dates: start: 20100422
  3. RITUXIMAB [Concomitant]
     Dosage: UNK
     Dates: start: 20100421

REACTIONS (2)
  - HEPATIC CIRRHOSIS [None]
  - SPLENOMEGALY [None]
